FAERS Safety Report 9103426 (Version 1)
Quarter: 2013Q1

REPORT INFORMATION
  Report Type: Spontaneous
  Country: US (occurrence: US)
  Receive Date: 20130219
  Receipt Date: 20130219
  Transmission Date: 20140127
  Serious: Yes (Hospitalization, Other)
  Sender: FDA-Public Use
  Company Number: US-PFIZER INC-2013061616

PATIENT
  Age: 23 Year
  Sex: Male
  Weight: 86.17 kg

DRUGS (3)
  1. LYRICA [Suspect]
     Indication: FIBROMYALGIA
     Dosage: 150 MG, 2X/DAY
     Dates: start: 201212
  2. CELEBREX [Suspect]
     Indication: RHEUMATOID ARTHRITIS
     Dosage: 200 MG, 1X/DAY
     Dates: start: 2012
  3. PROZAC [Concomitant]
     Dosage: 20 MG, 1X/DAY

REACTIONS (4)
  - Road traffic accident [Unknown]
  - Skin lesion [Recovered/Resolved]
  - Laceration [Recovered/Resolved]
  - Contusion [Recovered/Resolved]
